FAERS Safety Report 4954359-7 (Version None)
Quarter: 2006Q1

REPORT INFORMATION
  Report Type: 
  Country: None (occurrence: None)
  Receive Date: 20060327
  Receipt Date: 20050603
  Transmission Date: 20060701
  Serious: Yes (Hospitalization)
  Sender: FDA-Public Use
  Company Number: US-MERCK-0506USA00984

PATIENT
  Age: 57 Year
  Sex: Female
  Weight: 57 kg

DRUGS (4)
  1. VIOXX [Suspect]
     Indication: ARTHRITIS
     Route: 048
     Dates: start: 20040728, end: 20041122
  2. LOTENSIN [Concomitant]
     Route: 065
  3. NEXIUM [Concomitant]
     Route: 065
  4. DITROPAN [Concomitant]
     Route: 065

REACTIONS (12)
  - ALCOHOLISM [None]
  - BLOOD CHOLESTEROL INCREASED [None]
  - BLOOD SODIUM DECREASED [None]
  - CAROTID ARTERY STENOSIS [None]
  - CEREBROVASCULAR ACCIDENT [None]
  - COORDINATION ABNORMAL [None]
  - DEPRESSION [None]
  - FALL [None]
  - INJURY [None]
  - LIVER FUNCTION TEST ABNORMAL [None]
  - TREMOR [None]
  - URINARY INCONTINENCE [None]
